FAERS Safety Report 8019085-9 (Version None)
Quarter: 2012Q1

REPORT INFORMATION
  Report Type: 
  Country: None (occurrence: None)
  Receive Date: 20120103
  Receipt Date: 20111229
  Transmission Date: 20120608
  Serious: No
  Sender: FDA-Public Use
  Company Number: US-B.I. PHARMACEUTICALS,INC./RIDGEFIELD-2011-BP-28972BP

PATIENT
  Sex: Female

DRUGS (15)
  1. ATENOLOL [Concomitant]
     Indication: CARDIAC DISORDER
     Dosage: 175 MG
     Route: 048
     Dates: start: 20000101
  2. NIACIN [Concomitant]
     Indication: BLOOD CHOLESTEROL INCREASED
     Dosage: 2000 MG
     Route: 048
     Dates: start: 19910101
  3. ZOLPIDEM [Concomitant]
     Indication: INSOMNIA
     Dosage: 10 MG
     Route: 048
     Dates: start: 20060101
  4. AMLODIPINE [Concomitant]
     Indication: HYPERTENSION
     Route: 048
  5. MULTI-VITAMIN [Concomitant]
     Indication: SUPPLEMENTATION THERAPY
     Route: 048
  6. MAGNESIUM [Concomitant]
     Indication: SUPPLEMENTATION THERAPY
     Route: 048
  7. CLONAZEPAM [Concomitant]
     Indication: ANXIETY
     Dosage: 0.5 MG
     Route: 048
     Dates: start: 20060101
  8. VITAMIN B-12 [Concomitant]
     Indication: SUPPLEMENTATION THERAPY
     Route: 058
     Dates: start: 19910101
  9. VITAMIN D [Concomitant]
     Indication: SUPPLEMENTATION THERAPY
     Route: 048
  10. POTASSIUM CHLORIDE [Concomitant]
     Indication: SUPPLEMENTATION THERAPY
     Dosage: 10 MEQ
     Route: 048
     Dates: start: 20010101
  11. ASPIRIN [Concomitant]
     Dosage: 81 MG
     Route: 048
     Dates: start: 20030101
  12. ZOLOFT [Concomitant]
     Indication: NERVOUSNESS
     Dosage: 50 MG
     Route: 048
     Dates: start: 20111215
  13. CALCIUM ACETATE [Concomitant]
     Indication: SUPPLEMENTATION THERAPY
     Route: 048
  14. PRADAXA [Suspect]
     Indication: ATRIAL FIBRILLATION
     Dosage: 300 MG
     Route: 048
     Dates: start: 20111101
  15. KRILL OIL [Concomitant]
     Indication: SUPPLEMENTATION THERAPY
     Route: 048

REACTIONS (2)
  - SENSATION OF FOREIGN BODY [None]
  - OESOPHAGEAL PAIN [None]
